APPROVED DRUG PRODUCT: MACITENTAN
Active Ingredient: MACITENTAN
Strength: 10MG
Dosage Form/Route: TABLET;ORAL
Application: A211161 | Product #001
Applicant: MYLAN PHARMACEUTICALS INC
Approved: Dec 3, 2025 | RLD: No | RS: No | Type: DISCN